FAERS Safety Report 15995348 (Version 1)
Quarter: 2019Q1

REPORT INFORMATION
  Report Type: Spontaneous
  Country: US (occurrence: US)
  Receive Date: 20190222
  Receipt Date: 20190222
  Transmission Date: 20190418
  Serious: No
  Sender: FDA-Public Use
  Company Number: US-HORIZON-PRO-0036-2019

PATIENT
  Age: 12 Year
  Sex: Female

DRUGS (11)
  1. RENVELA POWDER [Concomitant]
  2. PRILOSEC SUSPENSION [Concomitant]
  3. CYSTAGON [Concomitant]
     Active Substance: CYSTEAMINE BITARTRATE
  4. LACTULOSE SOLUTION [Concomitant]
     Active Substance: LACTULOSE
     Dosage: 10 G / 15 ML
  5. ZOFRAN [Concomitant]
     Active Substance: ONDANSETRON HYDROCHLORIDE
  6. VITAMIN D3 POWDER [Concomitant]
     Dosage: 100,000 UNITS / G
  7. CALCITRIOL. [Concomitant]
     Active Substance: CALCITRIOL
  8. CYTRA-K SOLUTION [Concomitant]
     Route: 048
  9. PROCYSBI [Suspect]
     Active Substance: CYSTEAMINE BITARTRATE
     Indication: PRODUCT USED FOR UNKNOWN INDICATION
     Dosage: TAKE 750 MG (10 X 75MG CAPSULES EVERY 12 HOURS. TOTAL DAILY DOSE IS 1500 MG
     Route: 048
  10. G-LEVOCARNITINE SOLUTION [Concomitant]
     Dosage: 100 MG/ML
  11. SPIRONOLACTONE. [Concomitant]
     Active Substance: SPIRONOLACTONE

REACTIONS (2)
  - Intentional product use issue [Unknown]
  - Vomiting [Unknown]
